FAERS Safety Report 7148111-4 (Version None)
Quarter: 2010Q4

REPORT INFORMATION
  Report Type: 
  Country: None (occurrence: None)
  Receive Date: 20101209
  Receipt Date: 20101207
  Transmission Date: 20110411
  Serious: Yes (Other)
  Sender: FDA-Public Use
  Company Number: US-PFIZER INC-2010166644

PATIENT
  Sex: Female
  Weight: 58.957 kg

DRUGS (10)
  1. TOVIAZ [Suspect]
     Indication: HYPERTONIC BLADDER
     Dosage: 4 MG, 1X/DAY
     Route: 048
     Dates: start: 20101201, end: 20101201
  2. HYDROCHLOROTHIAZIDE [Concomitant]
     Indication: HYPERTENSION
     Dosage: UNK
  3. TOPROL-XL [Concomitant]
     Indication: HYPERTENSION
     Dosage: UNK
  4. NORVASC [Concomitant]
     Indication: HYPERTENSION
     Dosage: 5 MG, UNK
  5. WELLBUTRIN XL [Concomitant]
     Indication: DEPRESSION
     Dosage: UNK
  6. LORAZEPAM [Concomitant]
     Indication: ANXIETY
     Dosage: AS NEEDED
  7. METAMUCIL-2 [Concomitant]
     Indication: CONSTIPATION
     Dosage: UNK
  8. ACETAMINOPHEN W/ CODEINE [Concomitant]
     Indication: BACK PAIN
     Dosage: AS NEEDED
  9. AMOXICILLIN [Concomitant]
     Indication: TOOTH ABSCESS
     Dosage: 500 MG, 3X/DAY
  10. ACETAMINOPHEN [Concomitant]
     Indication: BACK PAIN
     Dosage: UNK

REACTIONS (1)
  - URINARY RETENTION [None]
